FAERS Safety Report 6937681-4 (Version None)
Quarter: 2010Q3

REPORT INFORMATION
  Report Type: 
  Country: None (occurrence: None)
  Receive Date: 20100820
  Receipt Date: 20100820
  Transmission Date: 20110219
  Serious: Yes (Hospitalization)
  Sender: FDA-Public Use
  Company Number: None

PATIENT
  Sex: Male
  Weight: 77.8 kg

DRUGS (2)
  1. TAXOTERE [Suspect]
     Dosage: 146 MG
     Dates: end: 20100706
  2. PREDNISONE [Suspect]
     Dosage: 140 MG

REACTIONS (2)
  - EMBOLIC CEREBRAL INFARCTION [None]
  - TRANSIENT ISCHAEMIC ATTACK [None]
